FAERS Safety Report 9016279 (Version 1)
Quarter: 2013Q1

REPORT INFORMATION
  Report Type: Spontaneous
  Country: US (occurrence: US)
  Receive Date: 20130116
  Receipt Date: 20130116
  Transmission Date: 20140127
  Serious: Yes (Life-Threatening, Hospitalization, Other)
  Sender: FDA-Public Use
  Company Number: US-B.I. PHARMACEUTICALS,INC./RIDGEFIELD-2013-BI-00826GD

PATIENT
  Age: 60 Year
  Sex: Female

DRUGS (5)
  1. DABIGATRAN ETEXILATE [Suspect]
     Indication: ATRIAL FIBRILLATION
     Dosage: 300 MG
  2. DABIGATRAN ETEXILATE [Suspect]
     Indication: CEREBROVASCULAR ACCIDENT PROPHYLAXIS
  3. IBUPROFEN [Suspect]
     Indication: ARTHRALGIA
  4. ASPIRIN [Suspect]
     Dosage: 81 MG
  5. ANTIHYPERTENSIVES [Concomitant]
     Indication: HYPERTENSION

REACTIONS (8)
  - Gastrointestinal haemorrhage [Recovered/Resolved]
  - Mental status changes [Unknown]
  - Oesophageal haemorrhage [Recovered/Resolved]
  - Orthostatic hypotension [Recovered/Resolved]
  - Epistaxis [Recovered/Resolved]
  - Pharyngeal haemorrhage [Recovered/Resolved]
  - Gastritis [Unknown]
  - Oedema [Unknown]
